FAERS Safety Report 19395312 (Version 1)
Quarter: 2021Q2

REPORT INFORMATION
  Report Type: Spontaneous
  Country: US (occurrence: US)
  Receive Date: 20210609
  Receipt Date: 20210609
  Transmission Date: 20210717
  Serious: Yes (Other)
  Sender: FDA-Public Use
  Company Number: US-PFIZER INC-2021625996

PATIENT
  Age: 57 Year

DRUGS (1)
  1. PREMARIN [Suspect]
     Active Substance: ESTROGENS, CONJUGATED
     Indication: BLOOD OESTROGEN DECREASED
     Dosage: 1 G, 2X/WEEK
     Route: 067

REACTIONS (10)
  - Oedema [Unknown]
  - Hot flush [Unknown]
  - Malaise [Unknown]
  - Paraesthesia [Unknown]
  - Off label use [Unknown]
  - Nausea [Unknown]
  - Pain in extremity [Unknown]
  - Hypertension [Unknown]
  - Peripheral swelling [Unknown]
  - Thirst [Unknown]
